FAERS Safety Report 6567183-9 (Version None)
Quarter: 2010Q1

REPORT INFORMATION
  Report Type: 
  Country: None (occurrence: None)
  Receive Date: 20100202
  Receipt Date: 20100128
  Transmission Date: 20100710
  Serious: Yes (Other)
  Sender: FDA-Public Use
  Company Number: CHPA2010US02027

PATIENT
  Age: 40 Year
  Sex: Female
  Weight: 116.1 kg

DRUGS (1)
  1. VOLTAREN [Suspect]
     Dosage: UNK, BID
     Route: 061
     Dates: start: 20100101

REACTIONS (3)
  - DRUG ADMINISTERED AT INAPPROPRIATE SITE [None]
  - HAEMATOCHEZIA [None]
  - OFF LABEL USE [None]
